FAERS Safety Report 4405266-X (Version None)
Quarter: 2004Q3

REPORT INFORMATION
  Report Type: 
  Country: None (occurrence: None)
  Receive Date: 20040716
  Receipt Date: 20040706
  Transmission Date: 20050211
  Serious: Yes (Hospitalization)
  Sender: FDA-Public Use
  Company Number: 2004AP03387

PATIENT
  Age: 49 Year
  Sex: Male

DRUGS (7)
  1. IRESSA [Suspect]
     Indication: NON-SMALL CELL LUNG CANCER
     Dosage: 250 MG DAILY PO
     Route: 048
     Dates: start: 20040524, end: 20040622
  2. MS CONTIN [Suspect]
     Indication: PAIN
     Dosage: 90 MG DAILY PO
     Route: 048
     Dates: start: 20030723, end: 20040622
  3. LOXONIN [Concomitant]
  4. MUCOSTA [Concomitant]
  5. ALOSENN [Concomitant]
  6. MAGNESIUM OXIDE [Concomitant]
  7. PURSENNID [Concomitant]

REACTIONS (16)
  - ABDOMINAL PAIN [None]
  - BOWEL SOUNDS ABNORMAL [None]
  - CONSTIPATION [None]
  - DECREASED APPETITE [None]
  - DIARRHOEA [None]
  - DRUG INTERACTION [None]
  - ECHOGRAPHY ABNORMAL [None]
  - FLATULENCE [None]
  - FLUID RETENTION [None]
  - HYPOAESTHESIA [None]
  - ILEUS [None]
  - NAUSEA [None]
  - NEUROPATHY PERIPHERAL [None]
  - PAIN IN EXTREMITY [None]
  - SUBILEUS [None]
  - VOMITING [None]
